FAERS Safety Report 5863475-7 (Version None)
Quarter: 2008Q3

REPORT INFORMATION
  Report Type: 
  Country: None (occurrence: None)
  Receive Date: 20080828
  Receipt Date: 20080819
  Transmission Date: 20090109
  Serious: Yes (Congenital Anomaly)
  Sender: FDA-Public Use
  Company Number: BR-TYCO HEALTHCARE/MALLINCKRODT-T200801380

PATIENT

DRUGS (2)
  1. SODIUM IODIDE I 131 [Suspect]
     Dosage: 93 MCI, UNK
  2. SODIUM IODIDE I 131 [Suspect]
     Dosage: 100 MCI, UNK

REACTIONS (1)
  - RENAL ARTERY STENOSIS [None]
